FAERS Safety Report 7400284-1 (Version None)
Quarter: 2011Q2

REPORT INFORMATION
  Report Type: 
  Country: None (occurrence: None)
  Receive Date: 20110405
  Receipt Date: 20110405
  Transmission Date: 20111010
  Serious: Yes (Other)
  Sender: FDA-Public Use
  Company Number: None

PATIENT
  Age: 48 Year
  Sex: Female
  Weight: 74.8435 kg

DRUGS (1)
  1. VALTREX [Suspect]
     Indication: VIRAL INFECTION
     Dosage: 500 MG 2X/DAY PO
     Route: 048
     Dates: start: 20110321, end: 20110328

REACTIONS (6)
  - DYSGEUSIA [None]
  - HEADACHE [None]
  - NAUSEA [None]
  - CHEST DISCOMFORT [None]
  - PAINFUL RESPIRATION [None]
  - DYSPNOEA [None]
